FAERS Safety Report 9022522 (Version 1)
Quarter: 2013Q1

REPORT INFORMATION
  Report Type: Spontaneous
  Country: US (occurrence: US)
  Receive Date: 20130118
  Receipt Date: 20130118
  Transmission Date: 20140127
  Serious: No
  Sender: FDA-Public Use
  Company Number: US-GLAXOSMITHKLINE-A0954119A

PATIENT
  Age: 36 Year
  Sex: Female

DRUGS (8)
  1. PROMACTA [Suspect]
     Indication: IDIOPATHIC THROMBOCYTOPENIC PURPURA
     Dosage: 25MG PER DAY
     Route: 048
     Dates: start: 201110
  2. LACTULOSE [Concomitant]
  3. FOLIC ACID [Concomitant]
  4. POTASSIUM [Concomitant]
  5. XANAX [Concomitant]
  6. LASIX [Concomitant]
  7. B-1 [Concomitant]
  8. ALDACTONE [Concomitant]

REACTIONS (2)
  - Platelet count increased [Not Recovered/Not Resolved]
  - Fatigue [Not Recovered/Not Resolved]
